FAERS Safety Report 4969059-7 (Version None)
Quarter: 2006Q2

REPORT INFORMATION
  Report Type: 
  Country: None (occurrence: None)
  Receive Date: 20060411
  Receipt Date: 20051031
  Transmission Date: 20061013
  Serious: Yes (Death, Hospitalization)
  Sender: FDA-Public Use
  Company Number: US-MERCK-0511USA00125

PATIENT
  Age: 69 Year
  Sex: Female
  Weight: 57 kg

DRUGS (22)
  1. VIOXX [Suspect]
     Indication: OSTEOARTHRITIS
     Route: 048
     Dates: start: 20000622, end: 20040110
  2. MENEST [Concomitant]
     Route: 065
  3. PREMARIN [Concomitant]
     Route: 065
  4. CLARITIN [Concomitant]
     Route: 065
  5. SONATA [Concomitant]
     Route: 065
  6. FLUOCINONIDE [Concomitant]
     Route: 065
  7. CEPHALEXIN [Concomitant]
     Route: 065
  8. TRAZODONE HYDROCHLORIDE [Concomitant]
     Route: 065
  9. ATENOLOL [Concomitant]
     Route: 065
  10. COZAAR [Concomitant]
     Route: 065
  11. DARVOCET [Concomitant]
     Route: 065
  12. BUSPAR [Concomitant]
     Route: 065
  13. XANAX [Concomitant]
     Route: 065
  14. PREDNISONE [Concomitant]
     Route: 065
  15. ZANTAC [Concomitant]
     Route: 065
  16. CIPRO [Concomitant]
     Route: 065
  17. VICODIN [Concomitant]
     Route: 065
  18. NORVASC [Concomitant]
     Route: 065
  19. LASIX [Concomitant]
     Route: 065
  20. ALDACTONE [Concomitant]
     Route: 065
  21. AMBIEN [Concomitant]
     Route: 065
  22. ATIVAN [Concomitant]
     Route: 065

REACTIONS (31)
  - AORTIC VALVE INCOMPETENCE [None]
  - ARRHYTHMIA [None]
  - ATRIAL FIBRILLATION [None]
  - BALANCE DISORDER [None]
  - BILIRUBINURIA [None]
  - BLOOD PRESSURE INADEQUATELY CONTROLLED [None]
  - CARDIAC ARREST [None]
  - CARDIAC FLUTTER [None]
  - CHEST PAIN [None]
  - COLONIC OBSTRUCTION [None]
  - CYSTITIS [None]
  - DEPRESSED LEVEL OF CONSCIOUSNESS [None]
  - DIARRHOEA [None]
  - GASTRITIS [None]
  - HAEMORRHOIDS [None]
  - HYPOTENSION [None]
  - INSOMNIA [None]
  - LEFT VENTRICULAR FAILURE [None]
  - MITRAL VALVE INCOMPETENCE [None]
  - MYOCARDIAL INFARCTION [None]
  - NAUSEA [None]
  - OEDEMA PERIPHERAL [None]
  - ONYCHOCLASIS [None]
  - ORGAN FAILURE [None]
  - PALPITATIONS [None]
  - RENAL FAILURE [None]
  - RESPIRATORY DISTRESS [None]
  - SLEEP APNOEA SYNDROME [None]
  - TRICUSPID VALVE INCOMPETENCE [None]
  - UPPER GASTROINTESTINAL HAEMORRHAGE [None]
  - URINARY TRACT INFECTION [None]
